FAERS Safety Report 10023050 (Version 4)
Quarter: 2015Q3

REPORT INFORMATION
  Report Type: Spontaneous
  Country: US (occurrence: US)
  Receive Date: 20140319
  Receipt Date: 20150727
  Transmission Date: 20151125
  Serious: Yes (Other)
  Sender: FDA-Public Use
  Company Number: US-SANOFI-AVENTIS-2012SA037890

PATIENT
  Age: 52 Year
  Sex: Male

DRUGS (2)
  1. ASPIRIN. [Concomitant]
     Active Substance: ASPIRIN
     Dates: start: 20020101, end: 20131231
  2. PLAVIX [Suspect]
     Active Substance: CLOPIDOGREL BISULFATE
     Indication: TRANSIENT ISCHAEMIC ATTACK
     Route: 048
     Dates: start: 20020101, end: 20131231

REACTIONS (12)
  - Social problem [Not Recovered/Not Resolved]
  - Deformity [Not Recovered/Not Resolved]
  - Anhedonia [Not Recovered/Not Resolved]
  - Economic problem [Not Recovered/Not Resolved]
  - Ulcer haemorrhage [Unknown]
  - Tension [Not Recovered/Not Resolved]
  - Psychological trauma [Not Recovered/Not Resolved]
  - Gastrointestinal haemorrhage [Recovered/Resolved]
  - Multiple injuries [Not Recovered/Not Resolved]
  - Loss of employment [Not Recovered/Not Resolved]
  - Pain [Not Recovered/Not Resolved]
  - Physical disability [Not Recovered/Not Resolved]

NARRATIVE: CASE EVENT DATE: 201007
